FAERS Safety Report 16172594 (Version 3)
Quarter: 2020Q2

REPORT INFORMATION
  Report Type: Report from Study
  Country: IT (occurrence: IT)
  Receive Date: 20190409
  Receipt Date: 20200513
  Transmission Date: 20200713
  Serious: Yes (Other)
  Sender: FDA-Public Use
  Company Number: IT-EMD SERONO-9061546

PATIENT
  Age: 37 Year
  Sex: Female
  Weight: 62 kg

DRUGS (3)
  1. MAVENCLAD [Suspect]
     Active Substance: CLADRIBINE
     Dosage: 1 TABLET = 10 MG
     Route: 048
     Dates: start: 20181224, end: 20181224
  2. MAVENCLAD [Suspect]
     Active Substance: CLADRIBINE
     Dosage: 1 TABLET = 10 MG
     Route: 048
     Dates: start: 20181223, end: 20181223
  3. MAVENCLAD [Suspect]
     Active Substance: CLADRIBINE
     Indication: RELAPSING MULTIPLE SCLEROSIS
     Dosage: DOSE / UNIT (1 TABLET = 10 MG): 2, 1, 1 (OVERALL 6 TABLETS FROM 20 DEC 2018 TO 24 DEC-2018)
     Route: 048
     Dates: start: 20181220, end: 20181224

REACTIONS (1)
  - Hypertransaminasaemia [Recovered/Resolved]

NARRATIVE: CASE EVENT DATE: 20181222
